FAERS Safety Report 24048776 (Version 1)
Quarter: 2024Q3

REPORT INFORMATION
  Report Type: Other
  Country: US (occurrence: US)
  Receive Date: 20240704
  Receipt Date: 20240704
  Transmission Date: 20241017
  Serious: Yes (Hospitalization, Other)
  Sender: BIONPHARMA
  Company Number: US-Bion-013362

PATIENT
  Age: 33 Year
  Sex: Female

DRUGS (2)
  1. PROGESTERONE [Suspect]
     Active Substance: PROGESTERONE
     Indication: In vitro fertilisation
     Route: 030
  2. ESTROGEN NOS [Concomitant]
     Active Substance: ESTROGENS
     Indication: In vitro fertilisation

REACTIONS (2)
  - Eosinophilic pneumonia acute [Recovered/Resolved]
  - Exposure during pregnancy [Unknown]
